FAERS Safety Report 24846611 (Version 1)
Quarter: 2025Q1

REPORT INFORMATION
  Report Type: Spontaneous
  Country: US (occurrence: US)
  Receive Date: 20250115
  Receipt Date: 20250115
  Transmission Date: 20250409
  Serious: No
  Sender: FERRING
  Company Number: US-FERRINGPH-2024FE00063

PATIENT
  Sex: Male

DRUGS (1)
  1. CLENPIQ [Suspect]
     Active Substance: ANHYDROUS CITRIC ACID\MAGNESIUM OXIDE\SODIUM PICOSULFATE
     Indication: Product used for unknown indication
     Route: 065

REACTIONS (4)
  - Muscular weakness [Unknown]
  - Gait disturbance [Unknown]
  - Ophthalmic migraine [Unknown]
  - Product complaint [Unknown]
